FAERS Safety Report 13054147 (Version 1)
Quarter: 2016Q4

REPORT INFORMATION
  Report Type: Spontaneous
  Country: US (occurrence: US)
  Receive Date: 20161222
  Receipt Date: 20161222
  Transmission Date: 20170207
  Serious: Yes (Other)
  Sender: FDA-Public Use
  Company Number: US-DEPOMED, INC.-US-2016DEP012998

PATIENT

DRUGS (4)
  1. GRALISE [Suspect]
     Active Substance: GABAPENTIN
     Indication: PAIN IN EXTREMITY
     Dosage: STARTED AT 300 MG AND FOLLOWED TITRATION SCHEDULE
     Route: 048
     Dates: start: 201612, end: 20161215
  2. TRAMADOL. [Concomitant]
     Active Substance: TRAMADOL
     Indication: PAIN
     Dosage: 50 MG, TID
     Route: 048
     Dates: start: 201612
  3. CARVEDILOL. [Concomitant]
     Active Substance: CARVEDILOL
     Indication: CARDIAC DISORDER
     Dosage: 12.5 MG, BID
     Route: 048
  4. FLUOXETINE [Concomitant]
     Active Substance: FLUOXETINE HYDROCHLORIDE
     Indication: PRODUCT USED FOR UNKNOWN INDICATION
     Dosage: 10 MG, QD
     Route: 048
     Dates: start: 2015

REACTIONS (7)
  - Hallucination [Recovered/Resolved]
  - Pain in extremity [Recovered/Resolved]
  - Feeling abnormal [Recovered/Resolved]
  - Unevaluable event [Recovered/Resolved]
  - Dizziness [Recovered/Resolved]
  - Drug titration error [Not Recovered/Not Resolved]
  - Product use issue [Recovered/Resolved]

NARRATIVE: CASE EVENT DATE: 201612
